FAERS Safety Report 20710449 (Version 2)
Quarter: 2022Q2

REPORT INFORMATION
  Report Type: Spontaneous
  Country: ES (occurrence: ES)
  Receive Date: 20220414
  Receipt Date: 20220620
  Transmission Date: 20220721
  Serious: Yes (Other)
  Sender: FDA-Public Use
  Company Number: ES-SA-SAC20220315001717

PATIENT
  Age: 85 Year
  Sex: Female
  Weight: 59.2 kg

DRUGS (3)
  1. METFORMIN [Suspect]
     Active Substance: METFORMIN HYDROCHLORIDE
     Indication: Type 2 diabetes mellitus
     Dosage: UNK
     Route: 048
  2. INSULIN GLARGINE [Suspect]
     Active Substance: INSULIN GLARGINE
     Indication: Type 2 diabetes mellitus
     Dosage: 30 INTERNATIONAL UNIT, ONCE A DAY(30 IU, QD)
     Route: 058
     Dates: start: 20211013
  3. AMARYL [Concomitant]
     Active Substance: GLIMEPIRIDE
     Indication: Type 2 diabetes mellitus
     Dosage: UNK UNK, ONCE A DAY(QD (0-1-0) )
     Route: 048

REACTIONS (4)
  - Blood glucose increased [Unknown]
  - Vitamin B12 deficiency [Unknown]
  - Blood cholesterol increased [Recovering/Resolving]
  - Diet noncompliance [Unknown]

NARRATIVE: CASE EVENT DATE: 20220308
